FAERS Safety Report 5355908-X (Version None)
Quarter: 2007Q2

REPORT INFORMATION
  Report Type: 
  Country: None (occurrence: None)
  Receive Date: 20070530
  Receipt Date: 20070102
  Transmission Date: 20071010
  Serious: Yes (Other)
  Sender: FDA-Public Use
  Company Number: US200609007116

PATIENT
  Age: 54 Year
  Sex: Male
  Weight: 112.5 kg

DRUGS (8)
  1. ZYPREXA [Suspect]
     Dosage: 10 MG
     Dates: start: 20000101, end: 20050101
  2. ABILIFY [Concomitant]
  3. CLOZAPINE [Concomitant]
  4. QUETIAPINE FUMARATE [Concomitant]
  5. VALPROATE BISMUTH (VALPROATE BISMUTH) [Concomitant]
  6. DOXEPIN HCL [Concomitant]
  7. SERTRALINE [Concomitant]
  8. METFORMIN (METFORMIN) [Concomitant]

REACTIONS (6)
  - BLOOD CHOLESTEROL INCREASED [None]
  - BLOOD TRIGLYCERIDES INCREASED [None]
  - CHOLELITHIASIS [None]
  - DIABETES MELLITUS [None]
  - DIABETIC HYPEROSMOLAR COMA [None]
  - METABOLIC DISORDER [None]
